FAERS Safety Report 16813185 (Version 1)
Quarter: 2019Q3

REPORT INFORMATION
  Report Type: Other
  Country: US (occurrence: US)
  Receive Date: 20190916
  Receipt Date: 20190916
  Transmission Date: 20191005
  Serious: No
  Sender: FDA-Public Use
  Company Number: US-LEADIANT BIOSCIENCES INC-2019STPI000292

PATIENT
  Age: 70 Year
  Sex: Male

DRUGS (2)
  1. GLEOSTINE [Concomitant]
     Active Substance: LOMUSTINE
     Indication: BRAIN NEOPLASM MALIGNANT
     Dosage: 200 MILLIGRAM, X1 ON DAY 1
  2. MATULANE [Suspect]
     Active Substance: PROCARBAZINE HYDROCHLORIDE
     Indication: BRAIN NEOPLASM MALIGNANT
     Dosage: 150 MILLIGRAM, QD ON DAYS 8-21 OF 56-DAY CYCLE
     Route: 048
     Dates: start: 20190406

REACTIONS (1)
  - Headache [Not Recovered/Not Resolved]

NARRATIVE: CASE EVENT DATE: 20190406
